FAERS Safety Report 11631048 (Version 2)
Quarter: 2015Q4

REPORT INFORMATION
  Report Type: Spontaneous
  Country: US (occurrence: US)
  Receive Date: 20151014
  Receipt Date: 20151214
  Transmission Date: 20160304
  Serious: Yes (Other)
  Sender: FDA-Public Use
  Company Number: US-JUBILANT CADISTA PHARMACEUTICALS-2015JUB00320

PATIENT
  Age: 13 Year
  Sex: Female
  Weight: 52.15 kg

DRUGS (6)
  1. LAMOTRIGINE. [Suspect]
     Active Substance: LAMOTRIGINE
     Dosage: 225 MG, 2X/DAY
     Route: 048
  2. LAMOTRIGINE. [Suspect]
     Active Substance: LAMOTRIGINE
     Dosage: 225 MG, 2X/DAY
     Route: 048
  3. LAMOTRIGINE. [Suspect]
     Active Substance: LAMOTRIGINE
     Dosage: 200 MG, 2X/DAY
     Route: 048
  4. LAMOTRIGINE. [Suspect]
     Active Substance: LAMOTRIGINE
     Dosage: 200 MG, 2X/DAY
     Route: 048
  5. LAMOTRIGINE. [Suspect]
     Active Substance: LAMOTRIGINE
     Indication: EPILEPSY
     Dosage: 175 MG, 2X/DAY
     Route: 048
     Dates: start: 20150610
  6. LAMOTRIGINE. [Suspect]
     Active Substance: LAMOTRIGINE
     Indication: EPILEPSY
     Dosage: 175 MG, 2X/DAY
     Route: 048
     Dates: start: 20150610

REACTIONS (11)
  - Drug ineffective [Unknown]
  - Local swelling [Unknown]
  - Contusion [Unknown]
  - Syncope [Recovered/Resolved]
  - Generalised tonic-clonic seizure [Recovering/Resolving]
  - Headache [Recovering/Resolving]
  - Product substitution issue [Unknown]
  - Petit mal epilepsy [Recovering/Resolving]
  - Fall [Recovered/Resolved]
  - Skin abrasion [Unknown]
  - Incontinence [Recovering/Resolving]

NARRATIVE: CASE EVENT DATE: 2015
